FAERS Safety Report 8380667-6 (Version None)
Quarter: 2012Q2

REPORT INFORMATION
  Report Type: 
  Country: None (occurrence: None)
  Receive Date: 20120523
  Receipt Date: 20120510
  Transmission Date: 20120825
  Serious: Yes (Hospitalization)
  Sender: FDA-Public Use
  Company Number: JP-ROCHE-656829

PATIENT
  Sex: Female
  Weight: 53 kg

DRUGS (15)
  1. ACTEMRA [Suspect]
     Route: 041
     Dates: start: 20080904, end: 20080904
  2. PREDNISOLONE [Concomitant]
     Indication: RHEUMATOID ARTHRITIS
     Route: 048
  3. FAMOTIDINE [Concomitant]
     Indication: GASTRIC ULCER
     Route: 048
  4. ACTEMRA [Suspect]
     Indication: RHEUMATOID ARTHRITIS
     Route: 041
     Dates: start: 20050824, end: 20080701
  5. ACTEMRA [Suspect]
     Route: 041
     Dates: start: 20081009, end: 20081009
  6. ACTEMRA [Suspect]
     Route: 041
     Dates: start: 20080731, end: 20080731
  7. MUCOSTA [Concomitant]
     Indication: GASTRIC ULCER
     Dosage: FORM: ORAL FORMULATION (NOT OTHERWISE SPECIFIED)
     Route: 048
  8. ACTEMRA [Suspect]
     Route: 041
     Dates: start: 20090122, end: 20090122
  9. ACTEMRA [Suspect]
     Route: 041
  10. ACTEMRA [Suspect]
     Route: 041
     Dates: start: 20081113, end: 20081113
  11. ACTEMRA [Suspect]
     Route: 041
     Dates: start: 20081218, end: 20081218
  12. MOBIC [Concomitant]
     Indication: RHEUMATOID ARTHRITIS
     Route: 048
  13. FAMOTIDINE [Concomitant]
  14. REBAMIPIDE [Concomitant]
  15. ACTEMRA [Suspect]
     Route: 041
     Dates: start: 20090220, end: 20090806

REACTIONS (1)
  - PLEURISY [None]
